FAERS Safety Report 8801452 (Version 2)
Quarter: 2015Q2

REPORT INFORMATION
  Report Type: Report from Study
  Country: US (occurrence: US)
  Receive Date: 20120921
  Receipt Date: 20150630
  Transmission Date: 20150821
  Serious: Yes (Death)
  Sender: FDA-Public Use
  Company Number: US-ROCHE-1125944

PATIENT
  Age: 64 Year
  Sex: Female

DRUGS (8)
  1. PHENERGAN [Concomitant]
     Active Substance: PROMETHAZINE HYDROCHLORIDE
  2. DECADRON [Concomitant]
     Active Substance: DEXAMETHASONE
  3. TYLENOL [Concomitant]
     Active Substance: ACETAMINOPHEN
  4. AVASTIN [Suspect]
     Active Substance: BEVACIZUMAB
     Indication: RECTOSIGMOID CANCER
     Route: 042
     Dates: start: 20070501
  5. COUMADIN [Concomitant]
     Active Substance: WARFARIN SODIUM
  6. BONIVA [Suspect]
     Active Substance: IBANDRONATE SODIUM
     Indication: PRODUCT USED FOR UNKNOWN INDICATION
     Route: 065
     Dates: start: 20071111
  7. AVASTIN [Suspect]
     Active Substance: BEVACIZUMAB
     Indication: LUNG NEOPLASM MALIGNANT
     Route: 042
  8. LORTAB (UNITED STATES) [Concomitant]

REACTIONS (7)
  - Asthenia [Recovering/Resolving]
  - Disease progression [Unknown]
  - Death [Fatal]
  - Fatigue [Unknown]
  - Musculoskeletal stiffness [Unknown]
  - Bone pain [Recovered/Resolved]
  - Arthralgia [Unknown]

NARRATIVE: CASE EVENT DATE: 20081112
